FAERS Safety Report 9608582 (Version 2)
Quarter: 2014Q1

REPORT INFORMATION
  Report Type: Spontaneous
  Country: JP (occurrence: JP)
  Receive Date: 20131009
  Receipt Date: 20140127
  Transmission Date: 20141002
  Serious: Yes (Hospitalization, Other)
  Sender: FDA-Public Use
  Company Number: JP-ELI_LILLY_AND_COMPANY-JP201309010535

PATIENT
  Age: 65 Year
  Sex: Female

DRUGS (4)
  1. ZYPREXA [Suspect]
     Indication: PRODUCT USED FOR UNKNOWN INDICATION
     Dosage: 10 MG, UNK
     Route: 048
     Dates: start: 20130916, end: 20130921
  2. VALPRO [Concomitant]
     Dosage: 400 MG, UNK
     Route: 048
     Dates: end: 20130921
  3. ROHYPNOL [Concomitant]
     Dosage: 1 MG, UNK
     Route: 048
  4. DOGMATYL [Concomitant]
     Dosage: 50 MG, UNK
     Route: 048

REACTIONS (3)
  - Renal failure acute [Recovered/Resolved]
  - Rhabdomyolysis [Recovered/Resolved]
  - Enterocolitis [Unknown]
